FAERS Safety Report 18294986 (Version 3)
Quarter: 2021Q2

REPORT INFORMATION
  Report Type: Spontaneous
  Country: US (occurrence: US)
  Receive Date: 20200922
  Receipt Date: 20210615
  Transmission Date: 20210717
  Serious: No
  Sender: FDA-Public Use
  Company Number: US-GLOBAL BLOOD THERAPEUTICS INC-US-GBT-20-01957

PATIENT
  Age: 60 Year
  Sex: Female

DRUGS (3)
  1. OXBRYTA [Suspect]
     Active Substance: VOXELOTOR
     Route: 048
     Dates: start: 202009, end: 2021
  2. OXBRYTA [Suspect]
     Active Substance: VOXELOTOR
     Route: 048
     Dates: start: 2021
  3. OXBRYTA [Suspect]
     Active Substance: VOXELOTOR
     Indication: SICKLE CELL DISEASE
     Route: 048
     Dates: start: 20200709, end: 2020

REACTIONS (15)
  - Constipation [Unknown]
  - Abdominal discomfort [Recovered/Resolved]
  - Therapy non-responder [Unknown]
  - Weight decreased [Unknown]
  - Gastritis [Recovered/Resolved]
  - Diarrhoea [Recovering/Resolving]
  - Hot flush [Unknown]
  - Oropharyngeal pain [Unknown]
  - Vomiting [Recovering/Resolving]
  - Nausea [Recovered/Resolved]
  - Decreased appetite [Recovered/Resolved]
  - Pyrexia [Unknown]
  - Abdominal pain [Unknown]
  - Product dose omission issue [Unknown]
  - Mood altered [Unknown]

NARRATIVE: CASE EVENT DATE: 20210119
